FAERS Safety Report 13979145 (Version 1)
Quarter: 2017Q3

REPORT INFORMATION
  Report Type: Report from Study
  Country: CA (occurrence: CA)
  Receive Date: 20170914
  Receipt Date: 20170914
  Transmission Date: 20171128
  Serious: Yes (Hospitalization)
  Sender: FDA-Public Use
  Company Number: CA-TERSERA THERAPEUTICS, LLC-2026236

PATIENT
  Age: 78 Year
  Sex: Male

DRUGS (15)
  1. HYDROCHLOROTHIAZIDE. [Concomitant]
     Active Substance: HYDROCHLOROTHIAZIDE
  2. ZYTIGA [Concomitant]
     Active Substance: ABIRATERONE ACETATE
  3. RAMIPRIL. [Concomitant]
     Active Substance: RAMIPRIL
  4. ASCORBIC ACID. [Concomitant]
     Active Substance: ASCORBIC ACID
  5. ZOLADEX [Suspect]
     Active Substance: GOSERELIN ACETATE
     Indication: PROSTATE CANCER
     Route: 058
     Dates: start: 20140530
  6. VITAMIN D [Concomitant]
     Active Substance: CHOLECALCIFEROL
  7. MACROBID [Concomitant]
     Active Substance: NITROFURANTOIN\NITROFURANTOIN MONOHYDRATE
  8. CYANOCOBALAMIN. [Concomitant]
     Active Substance: CYANOCOBALAMIN
  9. CALCIUM, COLECALCIFEROL [Concomitant]
     Active Substance: CALCIUM\CHOLECALCIFEROL
  10. ACETYLSALICYLIC ACID [Concomitant]
     Active Substance: ASPIRIN
  11. XGEVA [Concomitant]
     Active Substance: DENOSUMAB
  12. LACTULOSE. [Concomitant]
     Active Substance: LACTULOSE
  13. CRANBERRY. [Concomitant]
     Active Substance: CRANBERRY
  14. POTASSIUM CHLORIDE. [Concomitant]
     Active Substance: POTASSIUM CHLORIDE
  15. PREDNISONE. [Concomitant]
     Active Substance: PREDNISONE

REACTIONS (3)
  - Limb injury [Unknown]
  - Fall [Unknown]
  - Drug dose omission [Unknown]

NARRATIVE: CASE EVENT DATE: 2017
